FAERS Safety Report 8391258-5 (Version None)
Quarter: 2012Q2

REPORT INFORMATION
  Report Type: 
  Country: None (occurrence: None)
  Receive Date: 20120529
  Receipt Date: 20120515
  Transmission Date: 20120825
  Serious: Yes (Hospitalization)
  Sender: FDA-Public Use
  Company Number: AU-NOVOPROD-351722

PATIENT
  Age: 67 Year
  Sex: Female
  Weight: 98 kg

DRUGS (5)
  1. BLINDED UNKNOWN [Suspect]
     Indication: TYPE 2 DIABETES MELLITUS
     Route: 058
  2. BLINDED LIRAGLUTIDE FLEXPEN [Suspect]
     Indication: TYPE 2 DIABETES MELLITUS
     Route: 058
  3. BLINDED NO DRUG GIVEN [Suspect]
     Indication: TYPE 2 DIABETES MELLITUS
     Route: 058
  4. BLINDED PLACEBO RUN IN [Suspect]
     Indication: TYPE 2 DIABETES MELLITUS
     Route: 058
  5. BLINDED PLACEBO FLEXPEN [Suspect]
     Indication: TYPE 2 DIABETES MELLITUS
     Route: 058

REACTIONS (1)
  - GASTROOESOPHAGEAL REFLUX DISEASE [None]
